FAERS Safety Report 22609441 (Version 2)
Quarter: 2023Q2

REPORT INFORMATION
  Report Type: Spontaneous
  Country: IT (occurrence: IT)
  Receive Date: 20230616
  Receipt Date: 20230621
  Transmission Date: 20230721
  Serious: Yes (Life-Threatening, Other)
  Sender: FDA-Public Use
  Company Number: None

PATIENT

DRUGS (2)
  1. RILPIVIRINE [Suspect]
     Active Substance: RILPIVIRINE
     Indication: HIV test positive
     Dosage: 900 MG, (TOTAL)
     Route: 030
     Dates: start: 20230524, end: 20230524
  2. VOCABRIA [Suspect]
     Active Substance: CABOTEGRAVIR SODIUM
     Indication: HIV test positive
     Dosage: 600 MG, (TOTAL)
     Route: 030
     Dates: start: 20230524, end: 20230524

REACTIONS (2)
  - Pulmonary embolism [Recovering/Resolving]
  - Cardio-respiratory arrest [Recovering/Resolving]

NARRATIVE: CASE EVENT DATE: 20230526
